FAERS Safety Report 5956055-6 (Version None)
Quarter: 2008Q4

REPORT INFORMATION
  Report Type: 
  Country: None (occurrence: None)
  Receive Date: 20081118
  Receipt Date: 20081113
  Transmission Date: 20090506
  Serious: Yes (Hospitalization)
  Sender: FDA-Public Use
  Company Number: GB-SP-2008-03594

PATIENT
  Sex: Male

DRUGS (1)
  1. IMMUCYST [Suspect]
     Indication: BLADDER CANCER
     Route: 043
     Dates: start: 20071101, end: 20081103

REACTIONS (7)
  - ABDOMINAL DISTENSION [None]
  - BLADDER PERFORATION [None]
  - BLOOD CREATININE INCREASED [None]
  - BOVINE TUBERCULOSIS [None]
  - LOSS OF CONSCIOUSNESS [None]
  - SEPTIC SHOCK [None]
  - UNRESPONSIVE TO STIMULI [None]
